FAERS Safety Report 9948326 (Version 1)
Quarter: 2014Q1

REPORT INFORMATION
  Report Type: Spontaneous
  Country: US (occurrence: None)
  Receive Date: 20140122
  Receipt Date: 20140122
  Transmission Date: 20141002
  Serious: No
  Sender: FDA-Public Use
  Company Number: AP356-00165-SPO-US

PATIENT
  Age: 32 Year
  Sex: Female

DRUGS (3)
  1. BELVIQ (LORCASERIN HYDROCHLORIDE) [Suspect]
     Indication: WEIGHT CONTROL
     Route: 048
     Dates: start: 20130916, end: 20130923
  2. VIBRIN (ANTIDEPRESSANTS) [Concomitant]
  3. MIRENA (LEVONOGRESTREL) [Concomitant]

REACTIONS (2)
  - Weight increased [None]
  - Hunger [None]
